FAERS Safety Report 7016006-2 (Version None)
Quarter: 2010Q3

REPORT INFORMATION
  Report Type: 
  Country: None (occurrence: None)
  Receive Date: 20100927
  Receipt Date: 20100921
  Transmission Date: 20110219
  Serious: Yes (Other)
  Sender: FDA-Public Use
  Company Number: IT-TEVA-248791ISR

PATIENT
  Sex: Male

DRUGS (12)
  1. AZILECT [Suspect]
     Indication: PARKINSON'S DISEASE
     Route: 048
     Dates: start: 20100801
  2. FINASTERIDE [Concomitant]
     Route: 048
  3. CARBIDOPA W/LEVODOPA W/ENTACAPONE [Concomitant]
     Indication: PARKINSON'S DISEASE
     Route: 048
  4. QUETIAPINE [Concomitant]
  5. NITROGLYCERIN [Concomitant]
     Route: 062
  6. ACETYLSALICYLIC ACID [Concomitant]
  7. MIDODRINE HYDROCHLORIDE [Concomitant]
  8. CALCIUM FOLINATE [Concomitant]
  9. FUROSEMIDE [Concomitant]
  10. BUDESONIDE W/FORMOTEROL [Concomitant]
  11. ACETYLSALICYLATE LYSINE [Concomitant]
  12. RABEPRAZOLE SODIUM [Concomitant]

REACTIONS (1)
  - PANCYTOPENIA [None]
